FAERS Safety Report 8934102 (Version 1)
Quarter: 2012Q4

REPORT INFORMATION
  Report Type: 
  Country: US (occurrence: US)
  Receive Date: 20121129
  Receipt Date: 20121129
  Transmission Date: 20130627
  Serious: No
  Sender: FDA-Public Use
  Company Number: US-GLAXOSMITHKLINE-A0960466A

PATIENT
  Sex: Female

DRUGS (1)
  1. BUPROPION [Suspect]
     Route: 065

REACTIONS (2)
  - Drug ineffective [Recovered/Resolved]
  - Therapeutic response unexpected with drug substitution [Unknown]
